FAERS Safety Report 12590819 (Version 2)
Quarter: 2016Q4

REPORT INFORMATION
  Report Type: Spontaneous
  Country: PT (occurrence: PT)
  Receive Date: 20160726
  Receipt Date: 20161019
  Transmission Date: 20170207
  Serious: Yes (Death, Other)
  Sender: FDA-Public Use
  Company Number: PT-WEST-WARD PHARMACEUTICALS CORP.-PT-H14001-16-01286

PATIENT
  Age: 60 Year
  Sex: Male
  Weight: 70 kg

DRUGS (6)
  1. AMIODARONA HIKMA [Suspect]
     Active Substance: AMIODARONE
     Dosage: 600 MG/ML AT 8ML/H
     Route: 041
     Dates: start: 20160615, end: 20160615
  2. AMIODARONA HIKMA [Suspect]
     Active Substance: AMIODARONE
     Dosage: 600 MG/ML AT 2ML/H
     Route: 041
     Dates: start: 20160616, end: 20160616
  3. BENZYLPENICILLIN [Concomitant]
     Active Substance: PENICILLIN G
     Indication: ENDOCARDITIS
     Route: 042
     Dates: start: 20160614, end: 20160618
  4. AMIODARONA HIKMA [Suspect]
     Active Substance: AMIODARONE
     Indication: SUPRAVENTRICULAR TACHYARRHYTHMIA
     Route: 041
     Dates: start: 20160615, end: 20160615
  5. AMIODARONA HIKMA [Suspect]
     Active Substance: AMIODARONE
     Dosage: 600 MG/ML AT 6ML/H
     Route: 041
     Dates: start: 20160615, end: 20160615
  6. GENTAMICIN. [Concomitant]
     Active Substance: GENTAMICIN
     Indication: ENDOCARDITIS
     Route: 042
     Dates: start: 20160613, end: 20160616

REACTIONS (5)
  - Shock [Fatal]
  - Cardio-respiratory arrest [Fatal]
  - Renal impairment [Fatal]
  - Hepatic function abnormal [Fatal]
  - Multiple organ dysfunction syndrome [Fatal]

NARRATIVE: CASE EVENT DATE: 20160616
